FAERS Safety Report 14665102 (Version 1)
Quarter: 2018Q1

REPORT INFORMATION
  Report Type: Spontaneous
  Country: US (occurrence: US)
  Receive Date: 20180320
  Receipt Date: 20180320
  Transmission Date: 20180509
  Serious: Yes (Hospitalization)
  Sender: FDA-Public Use
  Company Number: None

PATIENT
  Age: 83 Year
  Sex: Male
  Weight: 86.8 kg

DRUGS (1)
  1. PEMBROLIZUMAB. [Suspect]
     Active Substance: PEMBROLIZUMAB
     Indication: METASTATIC MALIGNANT MELANOMA
     Route: 042

REACTIONS (5)
  - Dysphonia [None]
  - Dysphagia [None]
  - Eyelid ptosis [None]
  - Muscular weakness [None]
  - Diplopia [None]

NARRATIVE: CASE EVENT DATE: 20170909
